FAERS Safety Report 17870220 (Version 1)
Quarter: 2020Q2

REPORT INFORMATION
  Report Type: Spontaneous
  Country: IT (occurrence: IT)
  Receive Date: 20200608
  Receipt Date: 20200608
  Transmission Date: 20200714
  Serious: Yes (Hospitalization)
  Sender: FDA-Public Use
  Company Number: IT-NOVOPROD-730960

PATIENT
  Age: 61 Year
  Sex: Female

DRUGS (9)
  1. ATARAX [ALPRAZOLAM] [Concomitant]
     Active Substance: ALPRAZOLAM
     Dosage: UNK
  2. ENOXAPARIN [Concomitant]
     Active Substance: ENOXAPARIN
     Dosage: UNK
  3. ESCITALOPRAM [Concomitant]
     Active Substance: ESCITALOPRAM OXALATE
     Dosage: UNK
  4. LEVEMIR [Suspect]
     Active Substance: INSULIN DETEMIR
     Indication: TYPE 2 DIABETES MELLITUS
     Dosage: 24 IU, QD
     Route: 065
     Dates: start: 20190101, end: 20191209
  5. LASIX [Concomitant]
     Active Substance: FUROSEMIDE
     Dosage: UNK
  6. NOVORAPID [Suspect]
     Active Substance: INSULIN ASPART
     Indication: TYPE 2 DIABETES MELLITUS
     Dosage: 22 IU, QD
     Route: 065
     Dates: start: 20190101, end: 20191209
  7. KANRENOL [Concomitant]
     Active Substance: CANRENOATE POTASSIUM
     Dosage: UNK
  8. MEDROL [Concomitant]
     Active Substance: METHYLPREDNISOLONE
     Dosage: UNK
  9. DUROGESIC [Concomitant]
     Active Substance: FENTANYL
     Dosage: UNK

REACTIONS (2)
  - Sopor [Unknown]
  - Hypoglycaemia [Unknown]

NARRATIVE: CASE EVENT DATE: 20191209
